FAERS Safety Report 25819861 (Version 1)
Quarter: 2025Q3

REPORT INFORMATION
  Report Type: Spontaneous
  Country: US (occurrence: US)
  Receive Date: 20250918
  Receipt Date: 20250918
  Transmission Date: 20251021
  Serious: No
  Sender: KVK-TECH
  Company Number: US-KVK-TECH, INC-20250600099

PATIENT

DRUGS (1)
  1. OXYCODONE HYDROCHLORIDE [Suspect]
     Active Substance: OXYCODONE HYDROCHLORIDE
     Indication: Back pain
     Route: 065

REACTIONS (7)
  - Erythema [Unknown]
  - Taste disorder [Unknown]
  - Pharyngitis streptococcal [Unknown]
  - Abdominal discomfort [Unknown]
  - Product use issue [Unknown]
  - Product physical consistency issue [Unknown]
  - Unevaluable event [Unknown]
